FAERS Safety Report 4803676-X (Version None)
Quarter: 2005Q4

REPORT INFORMATION
  Report Type: 
  Country: None (occurrence: None)
  Receive Date: 20051017
  Receipt Date: 20050722
  Transmission Date: 20060501
  Serious: Yes (Other)
  Sender: FDA-Public Use
  Company Number: HQWYE530826JUL05

PATIENT
  Age: 9 Year
  Sex: Male

DRUGS (1)
  1. ALAVERT [Suspect]
     Indication: RHINORRHOEA
     Dosage: 1 TABLET 1X PER 1 DAY, ORAL
     Route: 048
     Dates: start: 20050720

REACTIONS (1)
  - PHARYNGOLARYNGEAL PAIN [None]
